FAERS Safety Report 15036537 (Version 1)
Quarter: 2018Q2

REPORT INFORMATION
  Report Type: Spontaneous
  Country: DE (occurrence: DE)
  Receive Date: 20180620
  Receipt Date: 20180620
  Transmission Date: 20180711
  Serious: Yes (Hospitalization)
  Sender: FDA-Public Use
  Company Number: DE-PFIZER INC-2018244465

PATIENT
  Age: 76 Year
  Sex: Female

DRUGS (8)
  1. TAVOR (LORAZEPAM) [Suspect]
     Active Substance: LORAZEPAM
     Dosage: 0.5 MG, AS NEEDED
  2. MIRTAZAPIN [Suspect]
     Active Substance: MIRTAZAPINE
     Dosage: 45 MG, 0-0-0-1
  3. RESTEX [Suspect]
     Active Substance: BENSERAZIDE\LEVODOPA
     Dosage: UNK, AS NEEDED
  4. QUETIAPIN [Suspect]
     Active Substance: QUETIAPINE
     Dosage: 50 MG, 1-1-1-0
  5. MIRTAZAPIN [Suspect]
     Active Substance: MIRTAZAPINE
     Dosage: 15 MG, 1-0-0-0
  6. QUETIAPIN [Suspect]
     Active Substance: QUETIAPINE
     Dosage: 300 MG, 0-0-0-1
  7. LYRICA [Suspect]
     Active Substance: PREGABALIN
     Dosage: 50 MG, 1-1-1-0
  8. ZOPICLON [Suspect]
     Active Substance: ZOPICLONE
     Dosage: 7.5 MG, UNK

REACTIONS (5)
  - Somnolence [Unknown]
  - Gait disturbance [Unknown]
  - Nausea [Unknown]
  - General physical health deterioration [Unknown]
  - Vomiting [Unknown]
